FAERS Safety Report 7649168-4 (Version None)
Quarter: 2011Q3

REPORT INFORMATION
  Report Type: 
  Country: None (occurrence: None)
  Receive Date: 20110802
  Receipt Date: 20110720
  Transmission Date: 20111222
  Serious: No
  Sender: FDA-Public Use
  Company Number: US-B.I. PHARMACEUTICALS,INC./RIDGEFIELD-2011-BP-18229BP

PATIENT
  Age: 82 Year
  Sex: Female

DRUGS (12)
  1. DILTIAZEM [Concomitant]
     Indication: HYPERTENSION
     Dosage: 120 MG
  2. TRAMADOL HCL [Concomitant]
  3. VIT B [Concomitant]
     Indication: VITAMIN SUPPLEMENTATION
  4. LOSARTAN POTASSIUM [Concomitant]
     Indication: HYPERTENSION
  5. PRADAXA [Suspect]
     Indication: ATRIAL FIBRILLATION
     Dosage: 300 MG
     Route: 048
     Dates: start: 20110101
  6. DIGOXIN [Concomitant]
     Indication: ATRIAL FIBRILLATION
  7. CLORCHOR [Concomitant]
     Indication: SUPPLEMENTATION THERAPY
  8. BUMEX [Concomitant]
     Indication: DIURETIC THERAPY
  9. METFORMIN [Concomitant]
     Indication: DIABETES MELLITUS
  10. LORAZEPAM [Concomitant]
     Indication: NERVOUS SYSTEM DISORDER
  11. OMEPRAZOLE [Concomitant]
     Indication: GASTROOESOPHAGEAL REFLUX DISEASE
  12. PRAVASTATIN [Concomitant]
     Indication: BLOOD CHOLESTEROL INCREASED
     Dosage: 40 MG

REACTIONS (6)
  - DYSPEPSIA [None]
  - ODYNOPHAGIA [None]
  - DECREASED APPETITE [None]
  - PRODUCTIVE COUGH [None]
  - ABDOMINAL PAIN UPPER [None]
  - WEIGHT DECREASED [None]
